FAERS Safety Report 5740694-1 (Version None)
Quarter: 2008Q2

REPORT INFORMATION
  Report Type: 
  Country: None (occurrence: None)
  Receive Date: 20080516
  Receipt Date: 20080507
  Transmission Date: 20081010
  Serious: Yes (Other)
  Sender: FDA-Public Use
  Company Number: IT-SANOFI-SYNTHELABO-A06200800239

PATIENT
  Age: 66 Year
  Sex: Male

DRUGS (10)
  1. ORAL HYPOGLYCAEMIC DRUGS [Concomitant]
     Indication: DIABETES MELLITUS
     Dosage: UNK
     Route: 048
  2. FLUOROURACIL [Suspect]
     Indication: COLON CANCER
     Dosage: UNK
     Route: 041
  3. FLUOROURACIL [Suspect]
     Indication: METASTASES TO LIVER
     Dosage: UNK
     Route: 041
  4. FLUOROURACIL [Suspect]
     Indication: METASTASES TO LUNG
     Dosage: UNK
     Route: 041
  5. OXALIPLATIN [Suspect]
     Indication: COLON CANCER
     Dosage: UNK
     Route: 041
  6. OXALIPLATIN [Suspect]
     Indication: METASTASES TO LIVER
     Dosage: UNK
     Route: 041
  7. OXALIPLATIN [Suspect]
     Indication: METASTASES TO LUNG
     Dosage: UNK
     Route: 041
  8. LEUCOVORIN CALCIUM [Suspect]
     Indication: COLON CANCER
     Dosage: UNK
     Route: 042
  9. LEUCOVORIN CALCIUM [Suspect]
     Indication: METASTASES TO LIVER
     Dosage: UNK
     Route: 042
  10. LEUCOVORIN CALCIUM [Suspect]
     Indication: METASTASES TO LUNG
     Dosage: UNK
     Route: 042

REACTIONS (2)
  - PSEUDOLYMPHOMA [None]
  - RASH PAPULAR [None]
